FAERS Safety Report 25382067 (Version 1)
Quarter: 2025Q2

REPORT INFORMATION
  Report Type: Spontaneous
  Country: DE (occurrence: DE)
  Receive Date: 20250531
  Receipt Date: 20250531
  Transmission Date: 20250717
  Serious: Yes (Other)
  Sender: CELLTRION
  Company Number: DE-ROCHE-3079183

PATIENT

DRUGS (8)
  1. RITUXIMAB [Suspect]
     Active Substance: RITUXIMAB
     Indication: Neuromyelitis optica spectrum disorder
     Dosage: 500 MG, EVERY 14 DAYS (182 DAYS BASED ON BODY WEIGHT)
     Route: 042
     Dates: start: 20220412, end: 20220412
  2. RITUXIMAB [Suspect]
     Active Substance: RITUXIMAB
     Dosage: 500 MG, EVERY 14 DAYS
     Route: 042
     Dates: start: 20220426, end: 20220426
  3. RITUXIMAB [Suspect]
     Active Substance: RITUXIMAB
     Route: 042
     Dates: start: 20221026, end: 20221026
  4. OCREVUS [Suspect]
     Active Substance: OCRELIZUMAB
     Indication: Neuromyelitis optica spectrum disorder
     Route: 042
     Dates: start: 20220412
  5. CHOLECALCIFEROL [Concomitant]
     Active Substance: CHOLECALCIFEROL
     Dosage: 20000 IU, EVERY 1 WEEK
  6. MOVICOL [Concomitant]
     Active Substance: POLYETHYLENE GLYCOL 3350\POTASSIUM CHLORIDE\SODIUM BICARBONATE\SODIUM CHLORIDE
  7. LEVOTHYROXINE [Concomitant]
     Active Substance: LEVOTHYROXINE
  8. ACETAMINOPHEN [Concomitant]
     Active Substance: ACETAMINOPHEN

REACTIONS (22)
  - Hypertensive crisis [Recovered/Resolved]
  - Vascular pain [Recovered/Resolved]
  - Shoulder fracture [Recovered/Resolved]
  - Wrist fracture [Recovered/Resolved]
  - Liver function test increased [Recovered/Resolved]
  - C-reactive protein increased [Recovered/Resolved]
  - Fall [Unknown]
  - Eosinophil count increased [Unknown]
  - Feeling cold [Recovered/Resolved]
  - White blood cell disorder [Recovered/Resolved]
  - Asthenia [Recovered/Resolved]
  - Cough [Recovered/Resolved]
  - Pyrexia [Recovered/Resolved]
  - Nasopharyngitis [Recovered/Resolved]
  - Alopecia [Recovered/Resolved]
  - Fatigue [Recovered/Resolved]
  - Infusion related reaction [Unknown]
  - Nausea [Recovered/Resolved]
  - Paravenous drug administration [Unknown]
  - Off label use [Unknown]
  - Off label use [Unknown]
  - Intentional product use issue [Unknown]

NARRATIVE: CASE EVENT DATE: 20220412
